FAERS Safety Report 8508003-2 (Version None)
Quarter: 2012Q2

REPORT INFORMATION
  Report Type: 
  Country: None (occurrence: None)
  Receive Date: 20120405
  Receipt Date: 20091008
  Transmission Date: 20120825
  Serious: Yes (Disabling)
  Sender: FDA-Public Use
  Company Number: PHEH2009US07290

PATIENT
  Sex: Male

DRUGS (19)
  1. GABAPENTIN [Concomitant]
  2. ZANTAC [Concomitant]
  3. BACLOFEN [Concomitant]
  4. CELEBREX [Concomitant]
  5. NEXIUM [Concomitant]
  6. ASCORBIC ACID [Concomitant]
  7. ALLOPURINOL [Concomitant]
  8. LYSINE (LYSINE) [Concomitant]
  9. STOOL SOFTENER (DOCUSATE SODIUM) [Concomitant]
  10. QUININE SULFATE [Concomitant]
  11. CENTRUM SILVER (ASCORBIC ACID, CALCIUM, MINERALS NOS, RETINOL, TOCOPHE [Concomitant]
  12. RECLAST [Suspect]
     Indication: OSTEOPOROSIS
     Dosage: 5 MG, ONCE A YEAR, INTRAVENOUS
     Route: 042
     Dates: start: 20090101, end: 20090101
  13. NYSTATIN [Concomitant]
  14. PENTOXIFYLLINE [Concomitant]
  15. TRIAMTERNE AND HYDROCHLOROTHIAZID ^HARRIS^ (HYDROCHLOROTHIAZIDE, TRIAM [Concomitant]
  16. CALCIUM CARBONATE [Concomitant]
  17. VITAMIN B12 [Concomitant]
  18. ROXICET [Concomitant]
  19. ANDROGEL [Concomitant]

REACTIONS (2)
  - PAIN [None]
  - BONE PAIN [None]
